FAERS Safety Report 9439345 (Version 1)
Quarter: 2013Q3

REPORT INFORMATION
  Report Type: Spontaneous
  Country: DE (occurrence: DE)
  Receive Date: 20130805
  Receipt Date: 20130805
  Transmission Date: 20140515
  Serious: Yes (Other)
  Sender: FDA-Public Use
  Company Number: DE-ELI_LILLY_AND_COMPANY-DE201307007771

PATIENT
  Sex: Male

DRUGS (16)
  1. ZYPREXA [Suspect]
     Indication: SOCIAL PHOBIA
     Dosage: 15 MG, UNKNOWN
     Route: 048
     Dates: start: 2010
  2. ZYPREXA [Suspect]
     Indication: INSOMNIA
     Dosage: 20 MG, UNKNOWN
     Route: 048
  3. ZYPREXA [Suspect]
     Indication: GENERALISED ANXIETY DISORDER
  4. ZYPREXA [Suspect]
     Indication: PANIC DISORDER WITH AGORAPHOBIA
  5. ZYPREXA [Suspect]
     Indication: POST-TRAUMATIC STRESS DISORDER
  6. ZYPREXA [Suspect]
     Indication: DEPRESSION
  7. CYMBALTA [Suspect]
     Dosage: 120 MG, UNKNOWN
     Route: 065
  8. TREVILOR [Suspect]
     Dosage: 1 DF, UNKNOWN
     Route: 065
  9. TAVOR /00273201/ [Suspect]
     Dosage: 20 MG, UNKNOWN
     Route: 065
  10. DIAZEPAM RATIOPHARM [Concomitant]
     Dosage: 1 DF, UNKNOWN
     Route: 065
  11. TAFIL [Concomitant]
     Dosage: 1 DF, UNKNOWN
     Route: 065
  12. IBUPROFEN [Concomitant]
     Dosage: 1 DF, PRN
     Route: 065
  13. DUAC [Concomitant]
     Dosage: 1 DF, UNKNOWN
     Route: 065
  14. PANTOPRAZOL [Concomitant]
     Dosage: 1 DF, UNKNOWN
     Route: 065
  15. BISOPROLOL [Concomitant]
     Dosage: 1 DF, UNKNOWN
     Route: 065
  16. LYRICA [Concomitant]
     Dosage: 1 DF, UNKNOWN
     Route: 065

REACTIONS (8)
  - Alanine aminotransferase increased [Not Recovered/Not Resolved]
  - Aspartate aminotransferase increased [Not Recovered/Not Resolved]
  - Weight increased [Not Recovered/Not Resolved]
  - Blood cholesterol increased [Not Recovered/Not Resolved]
  - Fluid retention [Not Recovered/Not Resolved]
  - Mental disorder [Not Recovered/Not Resolved]
  - Abnormal behaviour [Not Recovered/Not Resolved]
  - Off label use [Unknown]
